FAERS Safety Report 21668338 (Version 1)
Quarter: 2022Q4

REPORT INFORMATION
  Report Type: Report from Study
  Country: US (occurrence: None)
  Receive Date: 20221201
  Receipt Date: 20221201
  Transmission Date: 20230113
  Serious: Yes (Other)
  Sender: FDA-Public Use
  Company Number: 2022A388208

PATIENT
  Sex: Male

DRUGS (1)
  1. CALQUENCE [Suspect]
     Active Substance: ACALABRUTINIB
     Indication: Chronic lymphocytic leukaemia
     Route: 048

REACTIONS (7)
  - Heart rate increased [Unknown]
  - Oxygen saturation decreased [Unknown]
  - Saliva altered [Unknown]
  - Oral pain [Unknown]
  - Arthropathy [Unknown]
  - Fear [Unknown]
  - Fatigue [Unknown]
